FAERS Safety Report 19430524 (Version 2)
Quarter: 2021Q3

REPORT INFORMATION
  Report Type: Spontaneous
  Country: US (occurrence: US)
  Receive Date: 20210617
  Receipt Date: 20210805
  Transmission Date: 20211014
  Serious: No
  Sender: FDA-Public Use
  Company Number: US-ASTRAZENECA-2021A479346

PATIENT
  Age: 24751 Day
  Sex: Female

DRUGS (1)
  1. BYDUREON BCISE [Suspect]
     Active Substance: EXENATIDE
     Indication: FOOD CRAVING
     Route: 058
     Dates: start: 20210523

REACTIONS (5)
  - Device issue [Unknown]
  - Overweight [Unknown]
  - Incorrect dose administered by device [Unknown]
  - Off label use [Unknown]
  - Intentional device misuse [Unknown]

NARRATIVE: CASE EVENT DATE: 20210523
